FAERS Safety Report 6379348-X (Version None)
Quarter: 2009Q3

REPORT INFORMATION
  Report Type: 
  Country: None (occurrence: None)
  Receive Date: 20090928
  Receipt Date: 20090918
  Transmission Date: 20100115
  Serious: Yes (Hospitalization)
  Sender: FDA-Public Use
  Company Number: BE-ABBOTT-09P-013-0596354-00

PATIENT
  Sex: Male

DRUGS (3)
  1. TEVETEN [Suspect]
     Indication: HYPERTENSION
     Route: 048
     Dates: end: 20081015
  2. CRESTOR [Concomitant]
     Indication: HYPERCHOLESTEROLAEMIA
     Route: 048
     Dates: start: 20080527
  3. BIOFENAC [Concomitant]
     Indication: MYALGIA
     Route: 048

REACTIONS (2)
  - ALCOHOLIC SEIZURE [None]
  - HYPOTENSION [None]
